FAERS Safety Report 24942531 (Version 1)
Quarter: 2025Q1

REPORT INFORMATION
  Report Type: Spontaneous
  Country: US (occurrence: US)
  Receive Date: 20250207
  Receipt Date: 20250207
  Transmission Date: 20250408
  Serious: No
  Sender: SANOFI AVENTIS
  Company Number: US-SA-2025SA036779

PATIENT
  Sex: Female
  Weight: 52.27 kg

DRUGS (4)
  1. DUPIXENT [Suspect]
     Active Substance: DUPILUMAB
     Indication: Dermatitis atopic
     Dosage: 300 MG, QOW
     Route: 058
     Dates: start: 20190329
  2. COVID-19 VACCINE [Concomitant]
     Indication: Immunisation
  3. ADVIL [Concomitant]
     Active Substance: IBUPROFEN
  4. ROBITUSSIN COLD, COUGH + FLU [Concomitant]

REACTIONS (2)
  - Pruritus [Unknown]
  - Product dose omission issue [Unknown]
